FAERS Safety Report 12231656 (Version 1)
Quarter: 2016Q2

REPORT INFORMATION
  Report Type: Spontaneous
  Country: IT (occurrence: IT)
  Receive Date: 20160401
  Receipt Date: 20160401
  Transmission Date: 20160815
  Serious: Yes (Hospitalization)
  Sender: FDA-Public Use
  Company Number: IT-PFIZER INC-2016188087

PATIENT
  Age: 54 Year
  Sex: Female
  Weight: 53 kg

DRUGS (3)
  1. XANAX [Suspect]
     Active Substance: ALPRAZOLAM
     Indication: PANIC ATTACK
     Dosage: 7.5 MG, DAILY
     Route: 048
     Dates: start: 19860329, end: 20160329
  2. MINIAS [Suspect]
     Active Substance: LORMETAZEPAM
     Indication: INSOMNIA
     Dosage: 40 MG, DAILY
     Route: 048
     Dates: start: 19860329, end: 20160329
  3. HALCION [Suspect]
     Active Substance: TRIAZOLAM
     Indication: INSOMNIA
     Dosage: 0.5 MG, DAILY
     Route: 048
     Dates: start: 20000329, end: 20160329

REACTIONS (1)
  - Drug dependence [Recovering/Resolving]

NARRATIVE: CASE EVENT DATE: 20160329
